FAERS Safety Report 5728820-1 (Version None)
Quarter: 2008Q2

REPORT INFORMATION
  Report Type: 
  Country: None (occurrence: None)
  Receive Date: 20080430
  Receipt Date: 20080423
  Transmission Date: 20081010
  Serious: Yes (Death, Other)
  Sender: FDA-Public Use
  Company Number: 083-20785-08041749

PATIENT

DRUGS (10)
  1. THALOMID [Suspect]
     Indication: MULTIPLE MYELOMA
     Dosage: 100 MG, EVENING CONTINUOUSLY, ORAL
     Route: 048
  2. DEXAMETHASONE TAB [Suspect]
     Indication: MULTIPLE MYELOMA
     Dosage: 24MG ON THE DAY OF, AND THE DAY FOLLOWING, EACH BORTEZOMIB DOSE + THALIDOMIDE
  3. BORTEZOMIB (BORTEZOMIB) [Suspect]
     Indication: MULTIPLE MYELOMA
     Dosage: 10MG/M2 TWICE WEEKLY FOR 2 WEEKS (DAYS 1, 4, 8 + 11 OF EACH CYCLE) IN A 28-D CYCLE FOR A MAX OF SIX
     Route: 040
  4. DOXORUBICIN HCL [Suspect]
     Indication: MULTIPLE MYELOMA
     Dosage: 50MG/M2 REDUCED TO 30MG/M2, INTRAVENOUS
     Route: 042
  5. WARFARIN SODIUM [Concomitant]
  6. ANTIVIRIAL (ANTIVIRALS NOS) [Concomitant]
  7. ANTIFUNGAL (ANTIFUNGALS) [Concomitant]
  8. GRANULOCYTE (GRANULOCYTE COLONY STIMULATING FACTOR) [Concomitant]
  9. ERYTHROPOIETIC GROWTH FACTORS (EPOETIN ALFA) [Concomitant]
  10. BISPHOSPHONATES (BISPHOSPHONATES) [Concomitant]

REACTIONS (11)
  - CARDIAC FAILURE [None]
  - DISEASE PROGRESSION [None]
  - FEBRILE NEUTROPENIA [None]
  - GASTROINTESTINAL HAEMORRHAGE [None]
  - HAEMATOTOXICITY [None]
  - HAEMORRHAGE [None]
  - HERPES ZOSTER [None]
  - LUNG INFECTION [None]
  - NEUROPATHY PERIPHERAL [None]
  - NEUROTOXICITY [None]
  - THROMBOCYTOPENIA [None]
